FAERS Safety Report 15753494 (Version 1)
Quarter: 2018Q4

REPORT INFORMATION
  Report Type: Spontaneous
  Country: US (occurrence: US)
  Receive Date: 20181222
  Receipt Date: 20181222
  Transmission Date: 20190205
  Serious: No
  Sender: FDA-Public Use
  Company Number: US-MALLINCKRODT-T201803220

PATIENT
  Sex: Female
  Weight: 68 kg

DRUGS (1)
  1. FENTANYL TRANSDERMAL SYSTEM [Suspect]
     Active Substance: FENTANYL
     Indication: BACK PAIN
     Dosage: 50 MCG/HR ONE EVERY THREE DAYS
     Route: 062

REACTIONS (4)
  - Gait disturbance [Unknown]
  - Incorrect dose administered [Unknown]
  - Muscular weakness [Unknown]
  - Vision blurred [Unknown]
